FAERS Safety Report 7344707-5 (Version None)
Quarter: 2011Q1

REPORT INFORMATION
  Report Type: 
  Country: None (occurrence: None)
  Receive Date: 20110310
  Receipt Date: 20110224
  Transmission Date: 20110831
  Serious: Yes (Other)
  Sender: FDA-Public Use
  Company Number: PHHY2010US80820

PATIENT
  Sex: Female
  Weight: 57 kg

DRUGS (8)
  1. ZOLOFT [Concomitant]
  2. ASPIRIN [Concomitant]
     Dosage: 81 MG, UNK
     Route: 048
  3. PROTONIX [Concomitant]
     Dosage: 40 MG, UNK
  4. SIMVASTATIN [Concomitant]
     Dosage: 20 MG, UNK
  5. GLEEVEC [Suspect]
     Indication: DESMOID TUMOUR
     Dosage: 600 MG DAILY
     Route: 048
     Dates: start: 20100104, end: 20110210
  6. ROBINUL FORTE [Concomitant]
     Dosage: 2 MG, TWICE DAILY
  7. IMODIUM [Concomitant]
  8. IRON [Concomitant]

REACTIONS (8)
  - HALLUCINATION [None]
  - NEUTROPENIA [None]
  - NAUSEA [None]
  - VOMITING [None]
  - DRUG INEFFECTIVE [None]
  - MALAISE [None]
  - NEOPLASM PROGRESSION [None]
  - DYSPEPSIA [None]
